FAERS Safety Report 20526650 (Version 1)
Quarter: 2022Q1

REPORT INFORMATION
  Report Type: Other
  Country: None (occurrence: DE)
  Receive Date: 20220228
  Receipt Date: 20220228
  Transmission Date: 20220423
  Serious: Yes (Other)
  Sender: FDA-Public Use
  Company Number: DE-Appco Pharma LLC-2126287

PATIENT
  Age: 28 Year
  Sex: Female

DRUGS (2)
  1. HYDROXYCHLOROQUINE SULFATE [Suspect]
     Active Substance: HYDROXYCHLOROQUINE SULFATE
     Indication: Product used for unknown indication
     Route: 065
  2. COLCHICINE [Suspect]
     Active Substance: COLCHICINE
     Route: 065

REACTIONS (4)
  - Pericarditis [Unknown]
  - Pleurisy [Unknown]
  - Pancytopenia [Unknown]
  - Drug ineffective [Unknown]

NARRATIVE: CASE EVENT DATE: 20190601
